FAERS Safety Report 11442272 (Version 1)
Quarter: 2015Q3

REPORT INFORMATION
  Report Type: Spontaneous
  Country: US (occurrence: US)
  Receive Date: 20150901
  Receipt Date: 20150901
  Transmission Date: 20151125
  Serious: Yes (Death, Other)
  Sender: FDA-Public Use
  Company Number: US-BAXTER-2015BAX046976

PATIENT
  Age: 80 Year
  Sex: Male

DRUGS (7)
  1. NEXTERONE [Suspect]
     Active Substance: AMIODARONE HYDROCHLORIDE
     Dosage: 1 MG PER MINUTE
     Route: 042
  2. NEXTERONE [Suspect]
     Active Substance: AMIODARONE HYDROCHLORIDE
     Indication: VENTRICULAR TACHYCARDIA
     Dosage: LOADING DOSE
     Route: 042
  3. ACETAMINOPHEN. [Suspect]
     Active Substance: ACETAMINOPHEN
     Indication: PRODUCT USED FOR UNKNOWN INDICATION
     Route: 065
  4. ATORVASTATIN [Suspect]
     Active Substance: ATORVASTATIN
     Indication: PRODUCT USED FOR UNKNOWN INDICATION
     Route: 065
  5. HEPARIN [Concomitant]
     Active Substance: HEPARIN SODIUM
     Indication: ACUTE MYOCARDIAL INFARCTION
     Route: 065
  6. NEXTERONE [Suspect]
     Active Substance: AMIODARONE HYDROCHLORIDE
     Dosage: 0.5 MG PER MINUTE
     Route: 042
  7. TENECTEPLASE [Concomitant]
     Active Substance: TENECTEPLASE
     Indication: ACUTE MYOCARDIAL INFARCTION
     Route: 042

REACTIONS (3)
  - Hepatitis acute [Recovered/Resolved]
  - General physical health deterioration [Unknown]
  - Death [Fatal]
